FAERS Safety Report 9165840 (Version 1)
Quarter: 2013Q1

REPORT INFORMATION
  Report Type: Spontaneous
  Country: US (occurrence: US)
  Receive Date: 20130315
  Receipt Date: 20130315
  Transmission Date: 20140127
  Serious: Yes (Death, Hospitalization)
  Sender: FDA-Public Use
  Company Number: PHHY2013US024916

PATIENT
  Age: 39 Year
  Sex: Male

DRUGS (1)
  1. METFORMIN [Suspect]
     Dosage: 50 DF (1000 MG EACH), UNK

REACTIONS (7)
  - Cardiac arrest [Fatal]
  - Acute respiratory distress syndrome [Unknown]
  - Renal failure [Unknown]
  - Hypotension [Unknown]
  - Unresponsive to stimuli [Unknown]
  - Lactic acidosis [Unknown]
  - Intentional drug misuse [Unknown]
